FAERS Safety Report 9279444 (Version 1)
Quarter: 2013Q2

REPORT INFORMATION
  Report Type: Spontaneous
  Country: US (occurrence: US)
  Receive Date: 20130508
  Receipt Date: 20130508
  Transmission Date: 20140414
  Serious: No
  Sender: FDA-Public Use
  Company Number: US-TEVA-401992USA

PATIENT
  Age: 66 Year
  Sex: Male

DRUGS (1)
  1. ACTIQ [Suspect]
     Route: 048

REACTIONS (2)
  - Pain [Unknown]
  - Tooth erosion [Unknown]
